FAERS Safety Report 7245783-0 (Version None)
Quarter: 2011Q1

REPORT INFORMATION
  Report Type: 
  Country: None (occurrence: None)
  Receive Date: 20110126
  Receipt Date: 20110123
  Transmission Date: 20110831
  Serious: Yes (Other)
  Sender: FDA-Public Use
  Company Number: US-PFIZER INC-2011010227

PATIENT
  Sex: Female
  Weight: 56.689 kg

DRUGS (2)
  1. TOPAMAX [Concomitant]
     Indication: DEPRESSION
     Dosage: 50 MG, 2X/DAY
     Route: 048
  2. CHANTIX [Suspect]
     Indication: SMOKING CESSATION THERAPY
     Dosage: 0.5 MG, 1X/DAY
     Route: 048
     Dates: start: 20110108

REACTIONS (2)
  - AGITATION [None]
  - IRRITABILITY [None]
